FAERS Safety Report 5279757-6 (Version None)
Quarter: 2007Q1

REPORT INFORMATION
  Report Type: 
  Country: None (occurrence: None)
  Receive Date: 20061208
  Receipt Date: 20050527
  Transmission Date: 20070707
  Serious: Yes (Disabling)
  Sender: FDA-Public Use
  Company Number: 2005UW01196

PATIENT
  Age: 53 Year
  Sex: Female
  Weight: 88.4514 kg

DRUGS (1)
  1. CRESTOR [Suspect]
     Dosage: 5 MG DAILY PO
     Route: 048
     Dates: start: 20040407, end: 20040915

REACTIONS (5)
  - ANXIETY [None]
  - DEPRESSION [None]
  - DYSPNOEA [None]
  - MUSCULAR WEAKNESS [None]
  - PALPITATIONS [None]
